FAERS Safety Report 14978256 (Version 1)
Quarter: 2018Q2

REPORT INFORMATION
  Report Type: Spontaneous
  Country: US (occurrence: US)
  Receive Date: 20180606
  Receipt Date: 20180606
  Transmission Date: 20180711
  Serious: No
  Sender: FDA-Public Use
  Company Number: US-PFIZER INC-2017242164

PATIENT
  Age: 7 Year
  Sex: Male
  Weight: 16 kg

DRUGS (4)
  1. GENOTROPIN [Suspect]
     Active Substance: SOMATROPIN
     Dosage: 0.8 MG, ONCE A DAY (IN HIS THIGHS, BUTTOCKS OR STOMACH)
     Dates: start: 201604
  2. GENOTROPIN [Suspect]
     Active Substance: SOMATROPIN
     Dosage: 0.8 MG, ONCE A DAY (IN HIS THIGHS, BUTTOCKS OR STOMACH)
  3. GENOTROPIN [Suspect]
     Active Substance: SOMATROPIN
     Indication: GROWTH HORMONE DEFICIENCY
     Dosage: UNK
  4. QVAR [Concomitant]
     Active Substance: BECLOMETHASONE DIPROPIONATE
     Indication: ASTHMA
     Dosage: 80 UG, 2X/DAY (2 PUFFS TWICE A DAY)
     Route: 055

REACTIONS (4)
  - Drug dose omission [Unknown]
  - Vision blurred [Unknown]
  - Device issue [Unknown]
  - Photopsia [Unknown]

NARRATIVE: CASE EVENT DATE: 20170618
